FAERS Safety Report 6801188-5 (Version None)
Quarter: 2010Q2

REPORT INFORMATION
  Report Type: 
  Country: None (occurrence: None)
  Receive Date: 20100629
  Receipt Date: 20100617
  Transmission Date: 20101027
  Serious: Yes (Other)
  Sender: FDA-Public Use
  Company Number: CA-PFIZER INC-2010075924

PATIENT
  Age: 47 Year
  Sex: Female

DRUGS (1)
  1. LYRICA [Suspect]
     Indication: KNEE ARTHROPLASTY
     Dosage: 150 MG, 2X/DAY
     Dates: start: 20100501, end: 20100613

REACTIONS (7)
  - DIARRHOEA [None]
  - DYSURIA [None]
  - FEELING ABNORMAL [None]
  - INSOMNIA [None]
  - NAUSEA [None]
  - RENAL PAIN [None]
  - WITHDRAWAL SYNDROME [None]
